FAERS Safety Report 16520873 (Version 1)
Quarter: 2019Q3

REPORT INFORMATION
  Report Type: Spontaneous
  Country: US (occurrence: US)
  Receive Date: 20190702
  Receipt Date: 20190702
  Transmission Date: 20191004
  Serious: No
  Sender: FDA-Public Use
  Company Number: US-JNJFOC-20190632497

PATIENT
  Age: 8 Decade
  Sex: Male

DRUGS (2)
  1. DARZALEX [Suspect]
     Active Substance: DARATUMUMAB
     Indication: PLASMA CELL MYELOMA
     Dosage: THE PATIENT WAS ON DARATUMUMAB ONCE/MONTH AND STARTED DARATUMUMAB ON SINCE EARLY DECEMBER 2018
     Route: 065
     Dates: start: 201812
  2. DARZALEX [Suspect]
     Active Substance: DARATUMUMAB
     Route: 065

REACTIONS (1)
  - Oedema [Unknown]
